FAERS Safety Report 18099877 (Version 1)
Quarter: 2020Q3

REPORT INFORMATION
  Report Type: Spontaneous
  Country: US (occurrence: US)
  Receive Date: 20200731
  Receipt Date: 20200731
  Transmission Date: 20201103
  Serious: No
  Sender: FDA-Public Use
  Company Number: US-TEVA-2020-US-1810123

PATIENT

DRUGS (1)
  1. IRBESARTAN W/HYDROCHLOROTHIAZIDE [Suspect]
     Active Substance: HYDROCHLOROTHIAZIDE\IRBESARTAN
     Dosage: LRBESARTAN AND HYDROCHLOROTHIAZIDE : 12.5MG/300MG
     Route: 065

REACTIONS (3)
  - Chest pain [Unknown]
  - Feeling abnormal [Unknown]
  - Product substitution issue [Unknown]
